FAERS Safety Report 7772344-7 (Version None)
Quarter: 2011Q3

REPORT INFORMATION
  Report Type: 
  Country: None (occurrence: None)
  Receive Date: 20110922
  Receipt Date: 20110113
  Transmission Date: 20111222
  Serious: No
  Sender: FDA-Public Use
  Company Number: US-ASTRAZENECA-2008UW05825

PATIENT
  Age: 49 Year
  Sex: Female
  Weight: 86.2 kg

DRUGS (17)
  1. CYMBALTA [Concomitant]
     Dates: start: 20060221
  2. REMERON [Concomitant]
     Dates: start: 20031023
  3. BEXTRA [Concomitant]
  4. GLUCOPHAGE [Concomitant]
     Dates: start: 20040906
  5. LEXAPRO [Concomitant]
     Dates: start: 20031023
  6. ACTOS [Concomitant]
     Dates: start: 20040906
  7. SEROQUEL [Suspect]
     Indication: SLEEP DISORDER
     Route: 048
     Dates: start: 20031023, end: 20050328
  8. SEROQUEL [Suspect]
     Dosage: 100 MG-300MG
     Route: 048
     Dates: start: 20031023, end: 20060221
  9. SEROQUEL [Suspect]
     Dosage: 100 MG-300MG
     Route: 048
     Dates: start: 20031023, end: 20060221
  10. CYMBALTA [Concomitant]
     Dates: start: 20060101
  11. HYDROXYZINE [Concomitant]
     Dates: start: 20070101
  12. LEXAPRO [Concomitant]
     Dates: start: 20030101
  13. AMARYL [Concomitant]
     Dates: start: 20040906
  14. SEROQUEL [Suspect]
     Indication: POST-TRAUMATIC STRESS DISORDER
     Route: 048
     Dates: start: 20031023, end: 20050328
  15. SEROQUEL [Suspect]
     Indication: DEPRESSION
     Route: 048
     Dates: start: 20031023, end: 20050328
  16. SEROQUEL [Suspect]
     Dosage: 100 MG-300MG
     Route: 048
     Dates: start: 20031023, end: 20060221
  17. TRAZODONE HYDROCHLORIDE [Concomitant]
     Dosage: 50 MG 1 TO 2 TAB AT NIGHT
     Dates: start: 20060221

REACTIONS (6)
  - HYPOGLYCAEMIA [None]
  - SARCOIDOSIS [None]
  - TYPE 2 DIABETES MELLITUS [None]
  - FIBROMYALGIA [None]
  - BACK PAIN [None]
  - VIRAL INFECTION [None]
